FAERS Safety Report 7459368-4 (Version None)
Quarter: 2011Q2

REPORT INFORMATION
  Report Type: 
  Country: None (occurrence: None)
  Receive Date: 20110504
  Receipt Date: 20110504
  Transmission Date: 20111010
  Serious: Yes (Hospitalization)
  Sender: FDA-Public Use
  Company Number: None

PATIENT
  Age: 76 Year
  Sex: Male
  Weight: 92.0802 kg

DRUGS (1)
  1. DICLOXACILLIN [Suspect]
     Indication: STAPHYLOCOCCAL INFECTION
     Dosage: 4 DAILY FOR 7 DAYS ORAL 2 DAILY FOR 3 DAYS ORAL
     Route: 048
     Dates: start: 20101224, end: 20110103

REACTIONS (5)
  - OEDEMA PERIPHERAL [None]
  - HEADACHE [None]
  - BLOOD PRESSURE INCREASED [None]
  - ABDOMINAL PAIN [None]
  - TRANSIENT ISCHAEMIC ATTACK [None]
